FAERS Safety Report 11099063 (Version 1)
Quarter: 2015Q2

REPORT INFORMATION
  Report Type: Spontaneous
  Country: US (occurrence: US)
  Receive Date: 20150508
  Receipt Date: 20150508
  Transmission Date: 20150821
  Serious: No
  Sender: FDA-Public Use
  Company Number: US-009507513-1504USA004495

PATIENT
  Sex: Female

DRUGS (1)
  1. NEXPLANON [Suspect]
     Active Substance: ETONOGESTREL
     Indication: CONTRACEPTION
     Dosage: 1 ROD/THREE YEARS
     Route: 059

REACTIONS (4)
  - Implant site inflammation [Unknown]
  - Implant site erythema [Recovered/Resolved with Sequelae]
  - Cellulitis [Unknown]
  - Hypersensitivity [Unknown]
